FAERS Safety Report 8060731-1 (Version None)
Quarter: 2012Q1

REPORT INFORMATION
  Report Type: 
  Country: None (occurrence: None)
  Receive Date: 20120120
  Receipt Date: 20120106
  Transmission Date: 20120608
  Serious: Yes (Hospitalization)
  Sender: FDA-Public Use
  Company Number: GB-WATSON-2012-00270

PATIENT
  Age: 31 Year
  Sex: Male

DRUGS (1)
  1. TEMAZEPAM [Suspect]
     Indication: INTENTIONAL DRUG MISUSE
     Dosage: TWO 30MG CAPSULE CONTENTS
     Route: 013

REACTIONS (9)
  - MYOGLOBIN URINE PRESENT [None]
  - BLOOD CREATINE PHOSPHOKINASE INCREASED [None]
  - PERIPHERAL ISCHAEMIA [None]
  - GANGRENE [None]
  - INCORRECT ROUTE OF DRUG ADMINISTRATION [None]
  - MUSCLE NECROSIS [None]
  - DRUG ABUSE [None]
  - PERIPHERAL ARTERIAL OCCLUSIVE DISEASE [None]
  - COMPARTMENT SYNDROME [None]
